FAERS Safety Report 9490895 (Version 1)
Quarter: 2013Q3

REPORT INFORMATION
  Report Type: Spontaneous
  Country: US (occurrence: US)
  Receive Date: 20130830
  Receipt Date: 20130830
  Transmission Date: 20140515
  Serious: No
  Sender: FDA-Public Use
  Company Number: US-PFIZER INC-2013247817

PATIENT
  Age: 64 Year
  Sex: Female

DRUGS (15)
  1. RELPAX [Suspect]
     Indication: MIGRAINE
     Dosage: 40 MG, AS NEEDED
  2. FOLIC ACID [Concomitant]
     Dosage: 800 UG, 1X/DAY
  3. CALCIUM [Concomitant]
     Dosage: 1 DF, 2X/DAY
  4. VITAMIN E [Concomitant]
     Dosage: 1000 IU, 1X/DAY
  5. FLEXERIL [Concomitant]
     Dosage: 1 DF, 1X/DAY
  6. XANAX [Concomitant]
     Dosage: 0.5 MG, 3X/DAY
  7. ASPIRIN [Concomitant]
     Dosage: 8 MG, ALTERNATE DAY
  8. ALPHA LIPOIC ACID [Concomitant]
     Dosage: 200 MG, 2X/DAY
     Dates: end: 20130729
  9. OMEGA 3 [Concomitant]
     Dosage: 1000 MG, 3X/DAY
  10. MEDROXYPROGESTERONE ACETATE [Concomitant]
     Dosage: 2.5 MG, 1X/DAY
     Dates: end: 20130729
  11. OXYCODONE HYDROCHLORIDE [Concomitant]
     Dosage: 5 MG, AS NEEDED EVERY 4-6 HRS
  12. KLONOPIN [Concomitant]
     Dosage: 1 MG, AT BEDTIME
  13. VITAMIN B COMPLEX [Concomitant]
     Dosage: 1 DF, 1X/DAY
  14. ESTRADIOL [Concomitant]
     Dosage: 2 MG, 1X/DAY
     Dates: end: 20130729
  15. SOMA [Concomitant]
     Dosage: 350 MG, 3X/DAY AS NEEDED

REACTIONS (2)
  - Menopausal symptoms [Unknown]
  - Hot flush [Unknown]
